FAERS Safety Report 20690870 (Version 5)
Quarter: 2022Q3

REPORT INFORMATION
  Report Type: Spontaneous
  Country: CH (occurrence: CH)
  Receive Date: 20220408
  Receipt Date: 20220801
  Transmission Date: 20221027
  Serious: No
  Sender: FDA-Public Use
  Company Number: CH-JNJFOC-20220359893

PATIENT
  Age: 62 Year
  Sex: Female

DRUGS (3)
  1. FENTANYL [Suspect]
     Active Substance: FENTANYL
     Indication: Intervertebral disc protrusion
     Dosage: STRENGTH: 75.00 MCG/HR, CHANGED BY THE PHARMACY ON SATURDAY AND WEDNESDAY
     Route: 062
     Dates: start: 2004
  2. FENTANYL [Suspect]
     Active Substance: FENTANYL
     Route: 062
  3. FENTANYL [Suspect]
     Active Substance: FENTANYL

REACTIONS (7)
  - Product adhesion issue [Unknown]
  - Overdose [Unknown]
  - Hyperhidrosis [Not Recovered/Not Resolved]
  - Product physical issue [Unknown]
  - Off label use [Unknown]
  - Inappropriate schedule of product administration [Unknown]
  - Feeling hot [Unknown]
